FAERS Safety Report 26198827 (Version 1)
Quarter: 2025Q4

REPORT INFORMATION
  Report Type: Report from Study
  Country: US (occurrence: US)
  Receive Date: 20251225
  Receipt Date: 20251225
  Transmission Date: 20260117
  Serious: Yes (Other)
  Sender: MERCK KGAA
  Company Number: US-Merck Healthcare KGaA-2025059651

PATIENT
  Age: 65 Year
  Sex: Male

DRUGS (1)
  1. SEROSTIM [Suspect]
     Active Substance: SOMATROPIN
     Indication: Weight decreased
     Dosage: SN-50179454409
     Dates: start: 20251126, end: 20251211

REACTIONS (1)
  - Pulmonary thrombosis [Recovered/Resolved]
